FAERS Safety Report 9144569 (Version 1)
Quarter: 2013Q1

REPORT INFORMATION
  Report Type: Spontaneous
  Country: FR (occurrence: FR)
  Receive Date: 20130306
  Receipt Date: 20130306
  Transmission Date: 20140127
  Serious: Yes (Disabling)
  Sender: FDA-Public Use
  Company Number: FR-ROCHE-1198639

PATIENT
  Age: 76 Year
  Sex: Male

DRUGS (2)
  1. LUCENTIS [Suspect]
     Indication: AGE-RELATED MACULAR DEGENERATION
     Route: 050
     Dates: start: 20110622
  2. LUCENTIS [Suspect]
     Route: 050
     Dates: start: 20110728

REACTIONS (1)
  - Polymyalgia rheumatica [Not Recovered/Not Resolved]
